FAERS Safety Report 18891113 (Version 1)
Quarter: 2021Q1

REPORT INFORMATION
  Report Type: Report from Study
  Country: US (occurrence: US)
  Receive Date: 20210215
  Receipt Date: 20210215
  Transmission Date: 20210420
  Serious: Yes (Other)
  Sender: FDA-Public Use
  Company Number: US-AUROBINDO-AUR-APL-2021-006087

PATIENT

DRUGS (2)
  1. MELPHALAN INJECTION [Suspect]
     Active Substance: MELPHALAN
     Indication: RETINOBLASTOMA
  2. MELPHALAN INJECTION [Suspect]
     Active Substance: MELPHALAN
     Indication: VITREOUS DISORDER
     Dosage: UNK

REACTIONS (3)
  - Retinal toxicity [Unknown]
  - Product use issue [Unknown]
  - Product use in unapproved indication [Unknown]
